FAERS Safety Report 7441439-X (Version None)
Quarter: 2011Q2

REPORT INFORMATION
  Report Type: 
  Country: None (occurrence: None)
  Receive Date: 20110418
  Receipt Date: 20110404
  Transmission Date: 20111010
  Serious: Yes (Other)
  Sender: FDA-Public Use
  Company Number: 2011AP000648

PATIENT
  Age: 52 Year
  Sex: Male
  Weight: 82 kg

DRUGS (9)
  1. TRAZODONE HCL [Suspect]
     Indication: INSOMNIA
  2. CHANTIX [Suspect]
     Indication: SMOKING CESSATION THERAPY
     Dosage: 0.5 MG;QD;PO, 1 MG;QD;PO, 1 MG;BID;PO
     Route: 048
     Dates: start: 20080207
  3. CHANTIX [Suspect]
     Indication: SMOKING CESSATION THERAPY
     Dosage: 0.5 MG;QD;PO, 1 MG;QD;PO, 1 MG;BID;PO
     Route: 048
     Dates: start: 20090101
  4. MIRTAZAPINE [Concomitant]
  5. ACETYL SALICYLIC ACID USP BAT [Concomitant]
  6. ZOLPIDEM TARTRATE [Suspect]
     Indication: INSOMNIA
  7. OXYCODONE [Concomitant]
  8. ALPRAZOLAM [Suspect]
     Indication: ANXIETY
     Dosage: 2 MG;QID
  9. ALPRAZOLAM [Suspect]
     Indication: PANIC DISORDER
     Dosage: 2 MG;QID

REACTIONS (12)
  - DYSPNOEA [None]
  - DRUG INTERACTION [None]
  - ORAL SURGERY [None]
  - DRUG INEFFECTIVE [None]
  - ANXIETY [None]
  - NAUSEA [None]
  - ASTHENIA [None]
  - DYSGEUSIA [None]
  - ABDOMINAL DISCOMFORT [None]
  - STRESS [None]
  - BLOOD IRON DECREASED [None]
  - PANIC ATTACK [None]
